FAERS Safety Report 9132826 (Version 2)
Quarter: 2013Q2

REPORT INFORMATION
  Report Type: Spontaneous
  Country: IT (occurrence: IT)
  Receive Date: 20130301
  Receipt Date: 20130412
  Transmission Date: 20140414
  Serious: Yes (Other)
  Sender: FDA-Public Use
  Company Number: IT-ROCHE-1196711

PATIENT
  Age: 48 Year
  Sex: Male
  Weight: 87 kg

DRUGS (2)
  1. PEGASYS [Suspect]
     Indication: HEPATITIS C
     Route: 058
     Dates: start: 20111104, end: 20120306
  2. COPEGUS [Suspect]
     Indication: HEPATITIS C
     Route: 048
     Dates: start: 20111104, end: 20130306

REACTIONS (2)
  - Lymphadenopathy [Recovered/Resolved]
  - Hyperpyrexia [Not Recovered/Not Resolved]
